FAERS Safety Report 4354310-7 (Version None)
Quarter: 2004Q2

REPORT INFORMATION
  Report Type: 
  Country: None (occurrence: None)
  Receive Date: 20040503
  Receipt Date: 20031107
  Transmission Date: 20050107
  Serious: Yes (Other)
  Sender: FDA-Public Use
  Company Number: PHEH2003US09277

PATIENT
  Age: 80 Year
  Sex: Female

DRUGS (3)
  1. DIOVAN HCT [Suspect]
     Indication: HYPERTENSION
     Dosage: ONE TABLET DAILY, ORAL
     Route: 048
     Dates: start: 20030922, end: 20030930
  2. SPIRONOLACTONE [Concomitant]
  3. PRAVACHOL [Concomitant]

REACTIONS (1)
  - BLOOD PRESSURE INCREASED [None]
